FAERS Safety Report 9781079 (Version 2)
Quarter: 2013Q4

REPORT INFORMATION
  Report Type: Report from Study
  Country: JP (occurrence: JP)
  Receive Date: 20131224
  Receipt Date: 20131224
  Transmission Date: 20140711
  Serious: Yes (Hospitalization)
  Sender: FDA-Public Use
  Company Number: JP-ROCHE-1317327

PATIENT
  Age: 48 Year
  Sex: Female
  Weight: 58 kg

DRUGS (13)
  1. TRASTUZUMAB [Suspect]
     Indication: HER-2 POSITIVE BREAST CANCER
     Dosage: LOADING DOSE
     Route: 042
     Dates: start: 20130703
  2. TRASTUZUMAB [Suspect]
     Dosage: MAINTENANCE DOSE?LAST DOSE PRIOR TO EVENT 27/NOV/2013
     Route: 042
     Dates: start: 20130724
  3. PACLITAXEL [Suspect]
     Indication: HER-2 POSITIVE BREAST CANCER
     Dosage: LAST DOSE PRIOR TO SAE 09/OCT/2013
     Route: 065
     Dates: start: 20130703, end: 20131009
  4. EPIRUBICIN [Concomitant]
     Dosage: A TOTAL OF 4 CYCLE
     Route: 065
     Dates: start: 20130410
  5. BROTIZOLAM [Concomitant]
     Route: 065
     Dates: start: 20130224
  6. TAMOXIFEN CITRATE [Concomitant]
     Route: 065
     Dates: start: 20131016
  7. PANTETHINE [Concomitant]
     Route: 065
     Dates: start: 20130217
  8. MAGNESIUM OXIDE [Concomitant]
     Route: 065
     Dates: start: 20130217
  9. FLUTICASONE PROPIONATE [Concomitant]
     Dosage: DAILY DOSE 2 INHALATION.
     Route: 065
     Dates: start: 20131016
  10. FLUOROURACIL [Concomitant]
     Dosage: A TOTAL OF 4 CYCLE
     Route: 065
     Dates: start: 20130410
  11. CYCLOPHOSPHAMIDE [Concomitant]
     Dosage: A TOTAL OF 4 CYCLE
     Route: 065
     Dates: start: 20130410
  12. PLACEBO [Suspect]
     Indication: HER-2 POSITIVE BREAST CANCER
     Dosage: LOADING DOSE
     Route: 042
     Dates: start: 20130703
  13. PLACEBO [Suspect]
     Dosage: MAINTENANCE DOSE?LAST DOSE OF PRIOR TO SAE ON 27/NOV/2013
     Route: 042
     Dates: start: 20130724

REACTIONS (1)
  - Intestinal obstruction [Recovered/Resolved]
